FAERS Safety Report 15770838 (Version 1)
Quarter: 2018Q4

REPORT INFORMATION
  Report Type: Report from Study
  Country: BR (occurrence: BR)
  Receive Date: 20181228
  Receipt Date: 20181228
  Transmission Date: 20190205
  Serious: Yes (Other)
  Sender: FDA-Public Use
  Company Number: BR-JNJFOC-20181227892

PATIENT
  Sex: Female

DRUGS (3)
  1. CORTISONE [Suspect]
     Active Substance: CORTISONE\HYDROCORTISONE
     Indication: HYPOTHERMIA
     Route: 065
  2. INFLIXIMAB, RECOMBINANT [Suspect]
     Active Substance: INFLIXIMAB
     Indication: PSORIATIC ARTHROPATHY
     Route: 042
     Dates: start: 20181115
  3. CORTISONE [Suspect]
     Active Substance: CORTISONE\HYDROCORTISONE
     Indication: HYPERAEMIA
     Route: 065

REACTIONS (5)
  - Psoriasis [Unknown]
  - Infusion related reaction [Recovered/Resolved]
  - Hypothermia [Recovered/Resolved]
  - Nausea [Recovered/Resolved]
  - Hyperaemia [Recovered/Resolved]
